FAERS Safety Report 4336223-X (Version None)
Quarter: 2004Q2

REPORT INFORMATION
  Report Type: 
  Country: None (occurrence: None)
  Receive Date: 20040407
  Receipt Date: 20040326
  Transmission Date: 20050107
  Serious: Yes (Hospitalization)
  Sender: FDA-Public Use
  Company Number: PERI00204000840

PATIENT
  Age: 72 Year
  Sex: Female

DRUGS (5)
  1. COVERSYL (PERINDOPRIL) [Suspect]
     Indication: ILL-DEFINED DISORDER
     Dosage: 2 MG QD PO
     Route: 048
     Dates: start: 20031229
  2. TICLOPIDINE HCL [Concomitant]
  3. PARIET (RABEPRAZOLE SODIUM) [Concomitant]
  4. BAYASPIRINA (ACETYLSALICYLIC ACID) [Concomitant]
  5. ISOSORBIDE MONONITRATE [Concomitant]

REACTIONS (6)
  - ALANINE AMINOTRANSFERASE INCREASED [None]
  - ASPARTATE AMINOTRANSFERASE INCREASED [None]
  - DRUG ERUPTION [None]
  - EXCORIATION [None]
  - ORAL PAIN [None]
  - ORAL SOFT TISSUE DISORDER [None]
